FAERS Safety Report 8149439-1 (Version None)
Quarter: 2012Q1

REPORT INFORMATION
  Report Type: 
  Country: None (occurrence: None)
  Receive Date: 20120218
  Receipt Date: 20111014
  Transmission Date: 20120608
  Serious: No
  Sender: FDA-Public Use
  Company Number: US-ALLERGAN-1113597US

PATIENT
  Age: 50 Year
  Sex: Female

DRUGS (2)
  1. BLT NUMBING CREAM [Suspect]
     Indication: PRODUCT USED FOR UNKNOWN INDICATION
     Dosage: UNK
     Dates: start: 20110930
  2. BOTOX COSMETIC [Suspect]
     Indication: SKIN WRINKLING
     Dosage: 12 UNITS, SINGLE
     Route: 030
     Dates: start: 20110930, end: 20110930

REACTIONS (3)
  - PERIORBITAL OEDEMA [None]
  - HYPERSENSITIVITY [None]
  - RASH [None]
